FAERS Safety Report 10675946 (Version 3)
Quarter: 2015Q1

REPORT INFORMATION
  Report Type: Report from Study
  Country: US (occurrence: US)
  Receive Date: 20141225
  Receipt Date: 20150218
  Transmission Date: 20150720
  Serious: Yes (Life-Threatening, Hospitalization, Other)
  Sender: FDA-Public Use
  Company Number: US-BRISTOL-MYERS SQUIBB COMPANY-BMS-2014-002301

PATIENT
  Age: 49 Year
  Sex: Female
  Weight: 79.5 kg

DRUGS (2)
  1. CELLCEPT [Suspect]
     Active Substance: MYCOPHENOLATE MOFETIL\MYCOPHENOLATE MOFETIL HYDROCHLORIDE
     Indication: RENAL TRANSPLANT
     Dosage: 1000 MG, Q12H
     Route: 065
  2. BELATACEPT [Suspect]
     Active Substance: BELATACEPT
     Indication: RENAL TRANSPLANT
     Dosage: 400 MG, Q4WK
     Route: 042

REACTIONS (9)
  - Basal ganglia haemorrhage [Unknown]
  - Angina unstable [Unknown]
  - Acute kidney injury [Unknown]
  - Atrioventricular block complete [Unknown]
  - Aneurysm [Unknown]
  - Sepsis [Unknown]
  - Cerebral haemorrhage [Unknown]
  - Anaemia [Unknown]
  - Respiratory failure [Unknown]

NARRATIVE: CASE EVENT DATE: 20141204
